FAERS Safety Report 18941172 (Version 1)
Quarter: 2021Q1

REPORT INFORMATION
  Report Type: Spontaneous
  Country: ES (occurrence: ES)
  Receive Date: 20210225
  Receipt Date: 20210225
  Transmission Date: 20210420
  Serious: Yes (Life-Threatening, Hospitalization)
  Sender: FDA-Public Use
  Company Number: ES-TEVA-2021-ES-1883145

PATIENT
  Age: 1 Year
  Sex: Female

DRUGS (1)
  1. AMOXICILINA 250 MG/5 ML SOLUCION/SUSPENSION ORAL 120 ML 1 FRASCO [Suspect]
     Active Substance: AMOXICILLIN
     Dosage: 12.6 ML DAILY;
     Route: 048
     Dates: start: 20201214, end: 20201220

REACTIONS (1)
  - Agranulocytosis [Recovered/Resolved]

NARRATIVE: CASE EVENT DATE: 20201222
